FAERS Safety Report 15109532 (Version 2)
Quarter: 2025Q1

REPORT INFORMATION
  Report Type: Spontaneous
  Country: US (occurrence: US)
  Receive Date: 20180705
  Receipt Date: 20250319
  Transmission Date: 20250409
  Serious: No
  Sender: PFIZER
  Company Number: US-PFIZER INC-2018270870

PATIENT
  Age: 36 Year
  Sex: Female

DRUGS (1)
  1. METHOTREXATE SODIUM [Suspect]
     Active Substance: METHOTREXATE SODIUM
     Indication: Rheumatoid arthritis

REACTIONS (4)
  - Liver function test increased [Unknown]
  - Drug ineffective [Unknown]
  - Nasopharyngitis [Unknown]
  - Hepatic enzyme abnormal [Unknown]
